FAERS Safety Report 9787169 (Version 5)
Quarter: 2014Q3

REPORT INFORMATION
  Report Type: Report from Study
  Country: US (occurrence: US)
  Receive Date: 20131228
  Receipt Date: 20140711
  Transmission Date: 20150326
  Serious: Yes (Hospitalization, Other)
  Sender: FDA-Public Use
  Company Number: US-ALEXION-A201303804

PATIENT

DRUGS (1)
  1. SOLIRIS [Suspect]
     Active Substance: ECULIZUMAB
     Indication: HAEMOLYTIC URAEMIC SYNDROME
     Dosage: 1200 MG, EVERY 10 DAYS
     Route: 042
     Dates: start: 20130913

REACTIONS (14)
  - Lung disorder [Unknown]
  - Blood creatinine increased [Unknown]
  - Pneumonia [Unknown]
  - Shunt malfunction [Unknown]
  - Unevaluable event [Unknown]
  - Fatigue [Unknown]
  - Aspergillus infection [Recovering/Resolving]
  - Thrombosis [Not Recovered/Not Resolved]
  - Decubitus ulcer [Not Recovered/Not Resolved]
  - Platelet count decreased [Unknown]
  - Platelet count decreased [Unknown]
  - Asthenia [Unknown]
  - Renal function test abnormal [Unknown]
  - Infection [Unknown]

NARRATIVE: CASE EVENT DATE: 20140123
